FAERS Safety Report 16073041 (Version 1)
Quarter: 2019Q1

REPORT INFORMATION
  Report Type: Spontaneous
  Country: US (occurrence: US)
  Receive Date: 20190314
  Receipt Date: 20190314
  Transmission Date: 20190418
  Serious: No
  Sender: FDA-Public Use
  Company Number: US-SA-2019SA067828

PATIENT
  Age: 75 Year
  Sex: Female

DRUGS (15)
  1. LANTUS [Concomitant]
     Active Substance: INSULIN GLARGINE
     Dosage: 100 ML
  2. CRESTOR [Concomitant]
     Active Substance: ROSUVASTATIN CALCIUM
     Dosage: 20 MG
  3. ATENOLOL, CHLORTALIDONE [Concomitant]
     Active Substance: ATENOLOL\CHLORTHALIDONE
  4. VITAMIN B12 [Concomitant]
     Active Substance: CYANOCOBALAMIN
     Dosage: 1000 UG
  5. CARISOPRODOL. [Concomitant]
     Active Substance: CARISOPRODOL
  6. PRALUENT [Suspect]
     Active Substance: ALIROCUMAB
     Indication: HYPERLIPIDAEMIA
     Dosage: 75 MG, QOW
     Route: 058
     Dates: start: 20190125
  7. BACLOFEN. [Concomitant]
     Active Substance: BACLOFEN
  8. FLONASE [Concomitant]
     Active Substance: FLUTICASONE PROPIONATE
  9. INVOKANA [Concomitant]
     Active Substance: CANAGLIFLOZIN
     Dosage: 300 MG
  10. ECOTRIN [Concomitant]
     Active Substance: ASPIRIN
     Dosage: 325 MG
  11. AMLODIPINE AND VALSARTAN [Concomitant]
     Active Substance: AMLODIPINE\VALSARTAN
  12. SYNTHROID [Concomitant]
     Active Substance: LEVOTHYROXINE SODIUM
     Dosage: 112 UG
  13. EXFORGE [Concomitant]
     Active Substance: AMLODIPINE BESYLATE\VALSARTAN
     Dosage: UNK
  14. POTASSIUM CHLORIDE. [Concomitant]
     Active Substance: POTASSIUM CHLORIDE
  15. GABAPENTIN. [Concomitant]
     Active Substance: GABAPENTIN

REACTIONS (2)
  - Rash [Unknown]
  - Extra dose administered [Unknown]

NARRATIVE: CASE EVENT DATE: 20190304
